FAERS Safety Report 4423521-4 (Version None)
Quarter: 2004Q3

REPORT INFORMATION
  Report Type: 
  Country: None (occurrence: None)
  Receive Date: 20040713
  Receipt Date: 20040420
  Transmission Date: 20050211
  Serious: No
  Sender: FDA-Public Use
  Company Number: PHEH2004US04467

PATIENT
  Age: 67 Year
  Sex: Female

DRUGS (6)
  1. ELIDEL [Suspect]
     Indication: PSORIASIS
     Dosage: BID, TOPICAL
     Route: 061
     Dates: start: 20040416, end: 20040418
  2. ASPIRIN [Concomitant]
  3. GEMFIBROZIL [Concomitant]
  4. ZETIA [Concomitant]
  5. NABUMETONE [Concomitant]
  6. CARBAMAZEPINE [Concomitant]

REACTIONS (6)
  - APPLICATION SITE BURNING [None]
  - APPLICATION SITE ERYTHEMA [None]
  - APPLICATION SITE IRRITATION [None]
  - APPLICATION SITE SWELLING [None]
  - DIFFICULTY IN WALKING [None]
  - MUSCULOSKELETAL STIFFNESS [None]
